FAERS Safety Report 18069051 (Version 1)
Quarter: 2020Q3

REPORT INFORMATION
  Report Type: Spontaneous
  Country: ES (occurrence: ES)
  Receive Date: 20200725
  Receipt Date: 20200725
  Transmission Date: 20201103
  Serious: Yes (Other)
  Sender: FDA-Public Use
  Company Number: ES-CADILA HEALTHCARE LIMITED-ES-ZYDUS-027680

PATIENT

DRUGS (5)
  1. CONDROSAMINA [Concomitant]
     Dosage: 1?0?0
     Route: 048
     Dates: start: 20170314
  2. IRBESARTAN. [Suspect]
     Active Substance: IRBESARTAN
     Indication: PRODUCT USED FOR UNKNOWN INDICATION
     Dosage: 1?0?0
     Route: 048
     Dates: start: 20120101
  3. ZALDIAR [Concomitant]
     Active Substance: ACETAMINOPHEN\TRAMADOL HYDROCHLORIDE
     Dosage: 1?1?1
     Route: 048
     Dates: start: 20170314
  4. ORFIDAL [Concomitant]
     Active Substance: LORAZEPAM
     Dosage: 1 CP NOCHE
     Route: 048
     Dates: start: 20170314, end: 20171128
  5. IRBESARTAN W/ HYDROCLOROTHIAZIDE [Suspect]
     Active Substance: HYDROCHLOROTHIAZIDE\IRBESARTAN
     Indication: PRODUCT USED FOR UNKNOWN INDICATION
     Dosage: 1?0?0
     Route: 048
     Dates: start: 20170314, end: 20171128

REACTIONS (2)
  - Acute kidney injury [Recovered/Resolved]
  - Hyperkalaemia [Recovered/Resolved]

NARRATIVE: CASE EVENT DATE: 20171128
